FAERS Safety Report 23255493 (Version 2)
Quarter: 2023Q4

REPORT INFORMATION
  Report Type: Report from Study
  Country: DE (occurrence: DE)
  Receive Date: 20231203
  Receipt Date: 20231206
  Transmission Date: 20240109
  Serious: Yes (Life-Threatening, Hospitalization, Other)
  Sender: FDA-Public Use
  Company Number: DE-002147023-NVSC2022DE037177

PATIENT
  Age: 58 Year
  Sex: Male
  Weight: 118 kg

DRUGS (2)
  1. COSENTYX [Suspect]
     Active Substance: SECUKINUMAB
     Indication: Psoriasis
     Dosage: 300 MG, QMO (300 MG/4 WEEKS ON 1D/WEEK)
     Route: 058
     Dates: start: 20210621
  2. COSENTYX [Suspect]
     Active Substance: SECUKINUMAB
     Indication: Psoriatic arthropathy

REACTIONS (11)
  - Complicated appendicitis [Recovered/Resolved]
  - Abscess [Recovered/Resolved]
  - Atrial fibrillation [Recovered/Resolved]
  - Thrombosis [Recovered/Resolved]
  - Hyperthyroidism [Unknown]
  - Hypertension [Unknown]
  - COVID-19 [Unknown]
  - Hepatic cyst [Unknown]
  - Renal cyst [Unknown]
  - Obesity [Unknown]
  - Psoriasis [Unknown]

NARRATIVE: CASE EVENT DATE: 20220115
